FAERS Safety Report 24597060 (Version 3)
Quarter: 2025Q3

REPORT INFORMATION
  Report Type: Spontaneous
  Country: US (occurrence: US)
  Receive Date: 20241110
  Receipt Date: 20250903
  Transmission Date: 20251021
  Serious: No
  Sender: SANOFI AVENTIS
  Company Number: US-SA-2024SA313916

PATIENT
  Age: 29 Year

DRUGS (3)
  1. LANTUS SOLOSTAR [Suspect]
     Active Substance: INSULIN GLARGINE
     Indication: Blood glucose increased
     Dosage: 20 IU, BID
     Route: 058
  2. LANTUS SOLOSTAR [Suspect]
     Active Substance: INSULIN GLARGINE
     Dosage: 25 IU, BID
     Route: 058
  3. LANTUS SOLOSTAR [Suspect]
     Active Substance: INSULIN GLARGINE
     Dosage: 50 IU, BID
     Route: 058
     Dates: start: 202508

REACTIONS (1)
  - Off label use [Unknown]
